FAERS Safety Report 8226758-1 (Version None)
Quarter: 2012Q1

REPORT INFORMATION
  Report Type: 
  Country: None (occurrence: None)
  Receive Date: 20120322
  Receipt Date: 20120313
  Transmission Date: 20120608
  Serious: Yes (Other)
  Sender: FDA-Public Use
  Company Number: US-BAYER-2011-123175

PATIENT
  Age: 17 Year
  Sex: Female

DRUGS (6)
  1. YAZ [Suspect]
     Indication: PREMENSTRUAL SYNDROME
     Dosage: UNK
     Dates: start: 20081101, end: 20110101
  2. ACETAMINOPHEN [Concomitant]
     Indication: ABDOMINAL PAIN UPPER
  3. ACETAMINOPHEN [Concomitant]
     Indication: HEADACHE
     Dosage: ON AND OFF, UNK
     Dates: start: 20100101, end: 20110101
  4. ANTIBIOTICS [Concomitant]
     Dosage: ON AND OFF FOR WHOLE LIFE
  5. YASMIN [Suspect]
     Indication: PREMENSTRUAL SYNDROME
     Dosage: UNK
     Dates: start: 20081101, end: 20110101
  6. VENTOLIN [Concomitant]
     Indication: DYSPNOEA
     Dosage: UNK
     Dates: start: 20100501

REACTIONS (2)
  - GALLBLADDER DISORDER [None]
  - PAIN [None]
